FAERS Safety Report 24632622 (Version 1)
Quarter: 2024Q4

REPORT INFORMATION
  Report Type: Spontaneous
  Country: US (occurrence: US)
  Receive Date: 20241118
  Receipt Date: 20241118
  Transmission Date: 20250115
  Serious: No
  Sender: DERMAVANT SCIENCES
  Company Number: US-Dermavant-001350

PATIENT
  Sex: Female

DRUGS (5)
  1. VTAMA [Suspect]
     Active Substance: TAPINAROF
     Indication: Psoriasis
     Route: 061
     Dates: start: 202410
  2. BYSTOLIC [Concomitant]
     Active Substance: NEBIVOLOL HYDROCHLORIDE
  3. CLOBETASOL [Concomitant]
     Active Substance: CLOBETASOL
  4. Triamcinolone Ointment [Concomitant]
  5. AQUAPHOR [Concomitant]
     Active Substance: PETROLATUM

REACTIONS (3)
  - Application site papules [Unknown]
  - Application site folliculitis [Unknown]
  - Rash pruritic [Unknown]
